FAERS Safety Report 4392865-7 (Version None)
Quarter: 2004Q3

REPORT INFORMATION
  Report Type: 
  Country: None (occurrence: None)
  Receive Date: 20040708
  Receipt Date: 20040512
  Transmission Date: 20050211
  Serious: Yes (Disabling)
  Sender: FDA-Public Use
  Company Number: FR-AMGEN-UK076210

PATIENT
  Sex: Female
  Weight: 57 kg

DRUGS (2)
  1. NEULASTA [Suspect]
     Indication: CHEMOTHERAPY
     Route: 058
     Dates: start: 20040122
  2. TAXOTERE [Suspect]
     Route: 042
     Dates: start: 20040122, end: 20040223

REACTIONS (3)
  - EAR INFECTION [None]
  - OCULAR TOXICITY [None]
  - PALMAR-PLANTAR ERYTHRODYSAESTHESIA SYNDROME [None]
